FAERS Safety Report 9558467 (Version 2)
Quarter: 2013Q3

REPORT INFORMATION
  Report Type: Spontaneous
  Country: US (occurrence: US)
  Receive Date: 20130926
  Receipt Date: 20130926
  Transmission Date: 20140515
  Serious: No
  Sender: FDA-Public Use
  Company Number: US-BIOGENIDEC-2013BI043915

PATIENT
  Age: 59 Year
  Sex: Female

DRUGS (11)
  1. TECFIDERA [Suspect]
     Indication: MULTIPLE SCLEROSIS
     Route: 048
     Dates: start: 20130425, end: 20130502
  2. TECFIDERA [Suspect]
     Indication: MULTIPLE SCLEROSIS
     Route: 048
     Dates: start: 20130502
  3. BACLOFEN [Concomitant]
  4. XANAX [Concomitant]
  5. LORTAB [Concomitant]
  6. VICOPROFEN [Concomitant]
  7. CELEXA [Concomitant]
  8. OXYBUTININ [Concomitant]
  9. RITALIN [Concomitant]
  10. PROBIOTIC [Concomitant]
  11. VITAMIN D [Concomitant]

REACTIONS (7)
  - Dyspepsia [Not Recovered/Not Resolved]
  - Chest pain [Not Recovered/Not Resolved]
  - Nausea [Not Recovered/Not Resolved]
  - Abdominal pain [Not Recovered/Not Resolved]
  - Flushing [Not Recovered/Not Resolved]
  - Pruritus [Recovered/Resolved]
  - Vomiting [Unknown]
